FAERS Safety Report 6792557-0 (Version None)
Quarter: 2010Q2

REPORT INFORMATION
  Report Type: 
  Country: None (occurrence: None)
  Receive Date: 20100624
  Receipt Date: 20080804
  Transmission Date: 20101027
  Serious: No
  Sender: FDA-Public Use
  Company Number: US-PFIZER INC-2008065782

PATIENT
  Sex: Female
  Weight: 63.181 kg

DRUGS (2)
  1. XALATAN [Suspect]
     Indication: INTRAOCULAR PRESSURE INCREASED
     Dates: start: 20080710, end: 20080721
  2. VITAMINS [Concomitant]

REACTIONS (1)
  - EYELID OEDEMA [None]
